FAERS Safety Report 8227881-8 (Version None)
Quarter: 2012Q1

REPORT INFORMATION
  Report Type: 
  Country: None (occurrence: None)
  Receive Date: 20120322
  Receipt Date: 20120322
  Transmission Date: 20120608
  Serious: Yes (Hospitalization, Congenital Anomaly)
  Sender: FDA-Public Use
  Company Number: FR-PFIZER INC-2009188305

PATIENT
  Sex: Female
  Weight: 2.23 kg

DRUGS (7)
  1. XANAX [Suspect]
     Dosage: 0.50 MG DAILY
     Route: 064
  2. PREGABALIN [Suspect]
     Dosage: 75 MG DAILY
     Route: 064
     Dates: end: 20080520
  3. ATENOLOL [Suspect]
     Dosage: 100 MG DAILY
     Route: 064
     Dates: end: 20090101
  4. AMITRIPTYLINE HCL [Suspect]
     Dosage: 50 MG DAILY
     Route: 064
  5. NICARDIPINE [Concomitant]
     Indication: HYPERTENSION
     Route: 064
  6. TEMAZEPAM [Suspect]
     Dosage: 50 MG DAILY
     Route: 064
  7. ZOLPIDEM [Suspect]
     Dosage: 10 MG DAILY
     Route: 064
     Dates: end: 20080515

REACTIONS (8)
  - DYSMORPHISM [None]
  - MATERNAL EXPOSURE TIMING UNSPECIFIED [None]
  - NEONATAL RESPIRATORY DISTRESS SYNDROME [None]
  - BRADYCARDIA [None]
  - JAUNDICE NEONATAL [None]
  - CLINODACTYLY [None]
  - HYPOTONIA NEONATAL [None]
  - DRUG WITHDRAWAL SYNDROME NEONATAL [None]
